FAERS Safety Report 24289972 (Version 1)
Quarter: 2024Q3

REPORT INFORMATION
  Report Type: Report from Study
  Country: FR (occurrence: FR)
  Receive Date: 20240906
  Receipt Date: 20240906
  Transmission Date: 20241016
  Serious: Yes (Hospitalization)
  Sender: TAKEDA
  Company Number: FR-TAKEDA-2024TUS088221

PATIENT
  Age: 7 Year
  Sex: Male

DRUGS (8)
  1. TEDUGLUTIDE [Suspect]
     Active Substance: TEDUGLUTIDE
     Indication: Short-bowel syndrome
     Dosage: 1 MILLIGRAM, QD
     Route: 042
     Dates: start: 20240307
  2. TEDUGLUTIDE [Suspect]
     Active Substance: TEDUGLUTIDE
     Indication: Short-bowel syndrome
     Dosage: 1 MILLIGRAM, QD
     Route: 042
     Dates: start: 20240307
  3. TEDUGLUTIDE [Suspect]
     Active Substance: TEDUGLUTIDE
     Indication: Short-bowel syndrome
     Dosage: 1 MILLIGRAM, QD
     Route: 042
     Dates: start: 20240307
  4. TEDUGLUTIDE [Suspect]
     Active Substance: TEDUGLUTIDE
     Indication: Short-bowel syndrome
     Dosage: 1 MILLIGRAM, QD
     Route: 042
     Dates: start: 20240307
  5. BOTOX [Concomitant]
     Active Substance: ONABOTULINUMTOXINA
     Indication: Anastomotic ulcer
     Dosage: UNK
     Dates: start: 202306
  6. CYSTINE\RETINOL\SULFUR [Concomitant]
     Active Substance: CYSTINE\RETINOL\SULFUR
     Indication: Pharyngitis
     Dosage: UNK
     Route: 048
     Dates: start: 202303, end: 202304
  7. CYSTINE\RETINOL\SULFUR [Concomitant]
     Active Substance: CYSTINE\RETINOL\SULFUR
     Indication: Ear infection
  8. PENTASA [Concomitant]
     Active Substance: MESALAMINE
     Indication: Diarrhoea
     Dosage: UNK UNK, QD
     Route: 048
     Dates: start: 202204

REACTIONS (1)
  - Staphylococcal infection [Recovered/Resolved]

NARRATIVE: CASE EVENT DATE: 20240721
